FAERS Safety Report 4360571-0 (Version None)
Quarter: 2004Q2

REPORT INFORMATION
  Report Type: 
  Country: None (occurrence: None)
  Receive Date: 20040519
  Receipt Date: 20040511
  Transmission Date: 20050107
  Serious: Yes (Other)
  Sender: FDA-Public Use
  Company Number: JP-ROCHE-367606

PATIENT
  Age: 56 Year
  Sex: Male

DRUGS (1)
  1. ROCEPHIN [Suspect]
     Indication: INFECTION
     Dosage: ROUTE WAS REPORTED AS DRIP.
     Route: 050
     Dates: start: 20040511, end: 20040515

REACTIONS (3)
  - CARDIAC ARREST [None]
  - PRURITUS [None]
  - SHOCK [None]
